FAERS Safety Report 19354681 (Version 4)
Quarter: 2021Q3

REPORT INFORMATION
  Report Type: Report from Study
  Country: CO (occurrence: CO)
  Receive Date: 20210531
  Receipt Date: 20210728
  Transmission Date: 20211014
  Serious: Yes (Other)
  Sender: FDA-Public Use
  Company Number: NVSC2021CO054255

PATIENT
  Age: 17 Year
  Sex: Female
  Weight: 40 kg

DRUGS (6)
  1. HYDROCORTISONE. [Concomitant]
     Active Substance: HYDROCORTISONE
     Indication: PRODUCT USED FOR UNKNOWN INDICATION
     Dosage: 5 MG/3 TABLETS, QD (STARTED 8 MONTHS AGO)
     Route: 048
  2. OMNITROPE [Suspect]
     Active Substance: SOMATROPIN
     Indication: GROWTH RETARDATION
     Dosage: 1.5 ML
     Route: 065
  3. NORDITROPIN [Concomitant]
     Active Substance: SOMATROPIN
     Indication: PRODUCT USED FOR UNKNOWN INDICATION
     Dosage: UNK
     Route: 065
  4. OMNITROPE [Suspect]
     Active Substance: SOMATROPIN
     Indication: GROWTH HORMONE DEFICIENCY
     Dosage: 1.3 MG, QD
     Route: 058
     Dates: start: 202009
  5. CARBAMAZEPINE. [Suspect]
     Active Substance: CARBAMAZEPINE
     Indication: PRODUCT USED FOR UNKNOWN INDICATION
     Dosage: 200 MG/3, DAILY (STARTED 4 YEARS AGO)
     Route: 048
  6. LEVOTHYROXINE. [Concomitant]
     Active Substance: LEVOTHYROXINE
     Indication: PRODUCT USED FOR UNKNOWN INDICATION
     Dosage: 100 MG/ONE TABLET, QD
     Route: 048

REACTIONS (6)
  - Hormone level abnormal [Unknown]
  - Vomiting [Unknown]
  - Dizziness [Unknown]
  - Seizure [Unknown]
  - Ill-defined disorder [Unknown]
  - Product dispensing error [Unknown]

NARRATIVE: CASE EVENT DATE: 202009
